FAERS Safety Report 8831664 (Version 1)
Quarter: 2012Q4

REPORT INFORMATION
  Report Type: 
  Country: DE (occurrence: DE)
  Receive Date: 20121009
  Receipt Date: 20121009
  Transmission Date: 20130627
  Serious: Yes (Hospitalization, Congenital Anomaly)
  Sender: FDA-Public Use
  Company Number: DE-GLAXOSMITHKLINE-D0077227A

PATIENT
  Age: 0 Year
  Sex: Male
  Weight: 3.5 kg

DRUGS (4)
  1. PAROXETINE [Suspect]
     Indication: DEPRESSION
     Dosage: 60MG per day
     Route: 064
  2. DOXEPINE [Suspect]
     Indication: DEPRESSION
     Dosage: 125MG per day
     Route: 064
     Dates: start: 201012, end: 2011
  3. CARBAMAZEPINE [Suspect]
     Indication: ALCOHOL WITHDRAWAL SYNDROME
     Dosage: 1UNIT Three times per day
     Route: 064
  4. DISTRANEURIN [Suspect]
     Indication: ALCOHOL WITHDRAWAL SYNDROME
     Route: 064

REACTIONS (5)
  - Pulmonary valve stenosis congenital [Unknown]
  - Ventricular septal defect [Unknown]
  - Neonatal respiratory distress syndrome [Recovered/Resolved]
  - Atrial septal defect [Unknown]
  - Foetal exposure during pregnancy [Unknown]
